FAERS Safety Report 8986238 (Version 2)
Quarter: 2013Q1

REPORT INFORMATION
  Report Type: Spontaneous
  Country: JP (occurrence: None)
  Receive Date: 20121217
  Receipt Date: 20121221
  Transmission Date: 20140127
  Serious: Yes (Other)
  Sender: FDA-Public Use
  Company Number: DSA_61348_2012

PATIENT
  Age: 38 Year
  Sex: Female

DRUGS (4)
  1. FLUOROURACIL (FLUOROURACIL) [Suspect]
     Indication: OESOPHAGEAL CARCINOMA
     Dosage: (DF) , (DF) UNTIL NOT CONTINUING), (UNKNOWN)?
  2. PREDNISOLONE [Suspect]
     Indication: IDIOPATHIC THROMBOCYTOPENIC PURPURA
     Dosage: UNTIL NOT CONTINUING?
  3. DOCETAXEL [Suspect]
     Indication: OESOPHAGEAL CARCINOMA
     Dosage: (DF), (DF) (UNKNOWN UNTIL NOT CONTINUING)?
  4. CISPLATIN [Suspect]
     Indication: OESOPHAGEAL CARCINOMA
     Dosage: (DF), (DF) (UNKNOWN UNTIL NOT CONTINUING)?

REACTIONS (2)
  - Drug resistance [None]
  - Platelet count decreased [None]
